FAERS Safety Report 5385184-3 (Version None)
Quarter: 2007Q3

REPORT INFORMATION
  Report Type: 
  Country: None (occurrence: None)
  Receive Date: 20070709
  Receipt Date: 20070621
  Transmission Date: 20080115
  Serious: Yes (Life-Threatening, Hospitalization)
  Sender: FDA-Public Use
  Company Number: DSA_29975_2007

PATIENT
  Sex: Male

DRUGS (5)
  1. TAVOR /00273201/ (TAVOR) [Suspect]
     Dosage: ORAL
     Route: 048
     Dates: start: 20070523, end: 20070523
  2. ACETAMINOPHEN (SPALT FUR DIE NACHT) [Suspect]
     Dosage: 1500 MG 1X ORAL
     Route: 048
     Dates: start: 20070523, end: 20070523
  3. SPALT LIQUA (SPALT LIQUA) [Suspect]
     Dosage: ORAL
     Route: 048
     Dates: start: 20070523, end: 20070523
  4. VOMEX A /00019501/ (VOMEX A) (NOT SPECIFIED) [Suspect]
     Dosage: ORAL
     Route: 048
     Dates: start: 20070523, end: 20070523
  5. ETHANOL (ALCOHOL) [Suspect]
     Dosage: ORAL
     Route: 048
     Dates: start: 20070523, end: 20070523

REACTIONS (7)
  - ALCOHOL USE [None]
  - BLOOD CREATINE PHOSPHOKINASE INCREASED [None]
  - COMPARTMENT SYNDROME [None]
  - FATIGUE [None]
  - OVERDOSE [None]
  - RENAL FAILURE [None]
  - SUICIDE ATTEMPT [None]
